FAERS Safety Report 24214097 (Version 1)
Quarter: 2024Q3

REPORT INFORMATION
  Report Type: Spontaneous
  Country: US (occurrence: None)
  Receive Date: 20240815
  Receipt Date: 20240815
  Transmission Date: 20241017
  Serious: Yes (Hospitalization)
  Sender: Public
  Company Number: None

PATIENT
  Age: 53 Year
  Sex: Female

DRUGS (1)
  1. TEZSPIRE [Suspect]
     Active Substance: TEZEPELUMAB-EKKO
     Indication: Asthma
     Dosage: OTHER QUANTITY : 1 PEN UNDER THE SKIN ;?FREQUENCY : MONTHLY;?
     Route: 058
     Dates: start: 20240305

REACTIONS (1)
  - Asthma [None]

NARRATIVE: CASE EVENT DATE: 20240811
